FAERS Safety Report 22271578 (Version 1)
Quarter: 2023Q2

REPORT INFORMATION
  Report Type: Spontaneous
  Country: HU (occurrence: HU)
  Receive Date: 20230502
  Receipt Date: 20230502
  Transmission Date: 20230721
  Serious: Yes (Death)
  Sender: FDA-Public Use
  Company Number: None

PATIENT
  Age: 76 Year
  Sex: Female
  Weight: 72 kg

DRUGS (6)
  1. CAPECITABINE [Suspect]
     Active Substance: CAPECITABINE
     Indication: Adenocarcinoma gastric
     Dosage: 1500 MG IN THE MORNING AND 2000 MG IN THE EVENING
     Dates: start: 20230202
  2. OXALIPLATIN [Suspect]
     Active Substance: OXALIPLATIN
     Indication: Adenocarcinoma gastric
     Dates: start: 20230201, end: 20230201
  3. XGEVA [Suspect]
     Active Substance: DENOSUMAB
     Indication: Metastases to bone
     Dates: start: 20230201, end: 20230201
  4. PROPAFENONE [Concomitant]
     Active Substance: PROPAFENONE
  5. LOSARTAN [Concomitant]
     Active Substance: LOSARTAN
  6. ENOXAPARIN SODIUM [Concomitant]
     Active Substance: ENOXAPARIN SODIUM

REACTIONS (8)
  - Cognitive disorder [Fatal]
  - Asthenia [Fatal]
  - Vomiting [Recovered/Resolved]
  - Dizziness [Recovered/Resolved]
  - General physical health deterioration [Fatal]
  - Condition aggravated [Fatal]
  - Dysphagia [Fatal]
  - Hypertension [Recovered/Resolved]

NARRATIVE: CASE EVENT DATE: 20230201
